FAERS Safety Report 8077233-9 (Version None)
Quarter: 2012Q1

REPORT INFORMATION
  Report Type: 
  Country: None (occurrence: None)
  Receive Date: 20120126
  Receipt Date: 20120126
  Transmission Date: 20120608
  Serious: Yes (Other)
  Sender: FDA-Public Use
  Company Number: None

PATIENT
  Age: 17 Year
  Sex: Male
  Weight: 87.0906 kg

DRUGS (3)
  1. VISTARIL [Concomitant]
  2. ACETAMINOPHEN [Concomitant]
  3. ZYPREXA ZYDIS [Suspect]
     Indication: AGITATION
     Dosage: Q6H PRN
     Dates: start: 20111121

REACTIONS (3)
  - EYE PAIN [None]
  - VISUAL IMPAIRMENT [None]
  - ABNORMAL SENSATION IN EYE [None]
